FAERS Safety Report 5026141-6 (Version None)
Quarter: 2006Q2

REPORT INFORMATION
  Report Type: 
  Country: None (occurrence: None)
  Receive Date: 20060608
  Receipt Date: 20011220
  Transmission Date: 20061013
  Serious: Yes (Disabling)
  Sender: FDA-Public Use
  Company Number: 2001-12-1295

PATIENT
  Sex: Female
  Weight: 92 kg

DRUGS (9)
  1. ETHYOL [Suspect]
     Indication: ADVERSE DRUG REACTION
     Dosage: SUBCUTANEOUS
     Route: 058
     Dates: start: 20010821, end: 20010920
  2. SYNTHROID [Concomitant]
  3. WELLBUTRIN [Concomitant]
  4. DURAGESIC-100 [Concomitant]
  5. DARVOCET [Concomitant]
  6. ZOFRAN [Concomitant]
  7. CISPLATIN [Concomitant]
  8. FLUOROURACIL [Concomitant]
  9. RADIATION THERAPY [Concomitant]

REACTIONS (7)
  - ACTIVITIES OF DAILY LIVING IMPAIRED [None]
  - FATIGUE [None]
  - NAUSEA [None]
  - ORAL INTAKE REDUCED [None]
  - ORTHOSTATIC HYPOTENSION [None]
  - THERAPY NON-RESPONDER [None]
  - VOMITING [None]
